FAERS Safety Report 8336799 (Version 3)
Quarter: 2012Q4

REPORT INFORMATION
  Report Type: 
  Country: CA (occurrence: CA)
  Receive Date: 20120113
  Receipt Date: 20121028
  Transmission Date: 20130627
  Serious: Yes (Disabling, Other)
  Sender: FDA-Public Use
  Company Number: CA-JNJFOC-20120104131

PATIENT
  Age: 60 Year
  Sex: Female
  Weight: 80 kg

DRUGS (15)
  1. REMICADE [Suspect]
     Indication: SKIN DISORDER
     Route: 042
     Dates: start: 20110222
  2. REMICADE [Suspect]
     Indication: SKIN DISORDER
     Route: 042
     Dates: start: 20111228
  3. REMICADE [Suspect]
     Indication: SKIN DISORDER
     Dosage: APR/MAY-2011
     Route: 042
     Dates: start: 2011, end: 20111228
  4. REMICADE [Suspect]
     Indication: PYODERMA GANGRENOSUM
     Route: 042
     Dates: start: 20110222
  5. REMICADE [Suspect]
     Indication: PYODERMA GANGRENOSUM
     Dosage: APR/MAY-2011
     Route: 042
     Dates: start: 2011, end: 20111228
  6. REMICADE [Suspect]
     Indication: PYODERMA GANGRENOSUM
     Route: 042
     Dates: start: 20111228
  7. QUETIAPINE [Concomitant]
     Route: 048
     Dates: start: 20110715
  8. QUETIAPINE [Concomitant]
     Dosage: Ratio-Quetiapine 

at bedtime
     Route: 048
     Dates: start: 20110715
  9. PAROXETINE [Concomitant]
     Dosage: Teva-Paroxetine

in the morning
     Dates: start: 20110715
  10. WELLBUTRIN XL [Concomitant]
     Dosage: L A 24th 

in the morning
     Dates: start: 20110715
  11. PMS-CLONAZEPAM [Concomitant]
     Dosage: at bedtime
     Dates: start: 20110715
  12. NICOTINE / NICORETTE INVISIPATCH [Concomitant]
     Dosage: 15 mg/16 h

Apply skin patch and replaced every 24 hours. Alternate application sties.
     Route: 062
     Dates: start: 20111125
  13. NICORETTE CLASSIC [Concomitant]
     Dosage: Chew one piece of gum each time you feel an uncontrollable urge to smoke. Maximum 20 gums per day.
     Dates: start: 20111125
  14. ANTI-DEPRESSANT [Concomitant]
     Route: 065
  15. NEORAL [Concomitant]
     Route: 048

REACTIONS (1)
  - Deafness [Not Recovered/Not Resolved]
